FAERS Safety Report 21247764 (Version 1)
Quarter: 2022Q3

REPORT INFORMATION
  Report Type: Spontaneous
  Country: US (occurrence: None)
  Receive Date: 20220824
  Receipt Date: 20220824
  Transmission Date: 20221026
  Serious: No
  Sender: FDA-Public Use
  Company Number: US-Emmaus Medical, Inc.-EMM202206-000105

PATIENT
  Sex: Female
  Weight: 85.28 kg

DRUGS (1)
  1. ENDARI [Suspect]
     Active Substance: GLUTAMINE
     Indication: Sickle cell disease
     Dosage: 15 GM
     Route: 048
     Dates: start: 20190123

REACTIONS (3)
  - Pain [Unknown]
  - Headache [Unknown]
  - Product dose omission issue [Unknown]
